FAERS Safety Report 11326015 (Version 1)
Quarter: 2015Q3

REPORT INFORMATION
  Report Type: Spontaneous
  Country: US (occurrence: None)
  Receive Date: 20150729
  Receipt Date: 20150729
  Transmission Date: 20151125
  Serious: Yes (Hospitalization, Disabling, Other)
  Sender: FDA-Public Use
  Company Number: EY-BP-US-2015-092

PATIENT
  Sex: 0

DRUGS (1)
  1. BUPRENORPHINE. [Suspect]
     Active Substance: BUPRENORPHINE
     Indication: PRODUCT USED FOR UNKNOWN INDICATION

REACTIONS (6)
  - Head injury [None]
  - Intentional overdose [None]
  - Motor dysfunction [None]
  - Amnesia [None]
  - Cognitive disorder [None]
  - Fall [None]
